FAERS Safety Report 7278188-7 (Version None)
Quarter: 2011Q1

REPORT INFORMATION
  Report Type: 
  Country: None (occurrence: None)
  Receive Date: 20110207
  Receipt Date: 20110131
  Transmission Date: 20110831
  Serious: Yes (Other)
  Sender: FDA-Public Use
  Company Number: B0696126A

PATIENT
  Sex: Female

DRUGS (3)
  1. TYVERB [Suspect]
     Route: 065
  2. XELODA [Suspect]
     Route: 065
  3. MULTIPLE DRUG THERAPY [Concomitant]
     Route: 065

REACTIONS (2)
  - LIVER FUNCTION TEST ABNORMAL [None]
  - GENERAL PHYSICAL HEALTH DETERIORATION [None]
